FAERS Safety Report 4617266-5 (Version None)
Quarter: 2005Q1

REPORT INFORMATION
  Report Type: 
  Country: None (occurrence: None)
  Receive Date: 20050323
  Receipt Date: 20050318
  Transmission Date: 20050727
  Serious: Yes (Hospitalization)
  Sender: FDA-Public Use
  Company Number: US-MERCK-0503USA03415

PATIENT
  Age: 54 Year
  Sex: Male

DRUGS (1)
  1. INVANZ [Suspect]
     Route: 065
     Dates: start: 20050101, end: 20050101

REACTIONS (1)
  - MENTAL DISORDER DUE TO A GENERAL MEDICAL CONDITION [None]
